FAERS Safety Report 5485622-1 (Version None)
Quarter: 2007Q4

REPORT INFORMATION
  Report Type: 
  Country: None (occurrence: None)
  Receive Date: 20071015
  Receipt Date: 20071008
  Transmission Date: 20080405
  Serious: Yes (Hospitalization)
  Sender: FDA-Public Use
  Company Number: ES-ELI_LILLY_AND_COMPANY-ES200710002473

PATIENT
  Age: 81 Year
  Sex: Female

DRUGS (4)
  1. FORTEO [Suspect]
     Indication: OSTEOPOROSIS
     Dosage: 20 UG, DAILY (1/D)
     Route: 058
     Dates: start: 20060601
  2. SINTROM [Concomitant]
     Indication: ARRHYTHMIA
  3. GELOCATIL [Concomitant]
     Indication: PAIN
  4. ESPIDIFEN [Concomitant]
     Indication: PAIN

REACTIONS (1)
  - CHOLECYSTECTOMY [None]
